FAERS Safety Report 24314543 (Version 1)
Quarter: 2024Q3

REPORT INFORMATION
  Report Type: Spontaneous
  Country: US (occurrence: US)
  Receive Date: 20240913
  Receipt Date: 20240913
  Transmission Date: 20241016
  Serious: Yes (Other)
  Sender: CSL BEHRING
  Company Number: US-BEH-2024178400

PATIENT
  Sex: Female

DRUGS (1)
  1. HIZENTRA [Suspect]
     Active Substance: HUMAN IMMUNOGLOBULIN G
     Dosage: 3 MG, QW
     Route: 058

REACTIONS (2)
  - Cerebral palsy [Unknown]
  - Contusion [Not Recovered/Not Resolved]
